FAERS Safety Report 16663427 (Version 1)
Quarter: 2019Q3

REPORT INFORMATION
  Report Type: Report from Study
  Country: US (occurrence: US)
  Receive Date: 20190802
  Receipt Date: 20190802
  Transmission Date: 20191004
  Serious: No
  Sender: FDA-Public Use
  Company Number: US-EXELIXIS-CABO-19020626

PATIENT
  Sex: Male
  Weight: 105.35 kg

DRUGS (1)
  1. CABOMETYX [Suspect]
     Active Substance: CABOZANTINIB S-MALATE
     Indication: MALIGNANT NEOPLASM OF RENAL PELVIS
     Dosage: 40 MG, QD (TWO 20 MG TABLETS BY MOUTH DAILY)
     Route: 048
     Dates: start: 20170407

REACTIONS (3)
  - Anorectal infection [Unknown]
  - Off label use [Unknown]
  - Diarrhoea [Unknown]
